FAERS Safety Report 7736625-5 (Version None)
Quarter: 2011Q3

REPORT INFORMATION
  Report Type: 
  Country: None (occurrence: None)
  Receive Date: 20110908
  Receipt Date: 20110902
  Transmission Date: 20111222
  Serious: Yes (Hospitalization, Other)
  Sender: FDA-Public Use
  Company Number: CA-PFIZER INC-2011208083

PATIENT
  Age: 53 Year
  Sex: Male

DRUGS (2)
  1. VALPROATE SODIUM [Suspect]
  2. DILANTIN [Suspect]
     Dosage: UNK
     Dates: end: 20101201

REACTIONS (7)
  - CONVULSION [None]
  - SPEECH DISORDER [None]
  - MOVEMENT DISORDER [None]
  - DYSARTHRIA [None]
  - TOXICITY TO VARIOUS AGENTS [None]
  - LETHARGY [None]
  - IMPAIRED SELF-CARE [None]
